FAERS Safety Report 8547646-7 (Version None)
Quarter: 2012Q3

REPORT INFORMATION
  Report Type: 
  Country: None (occurrence: None)
  Receive Date: 20120727
  Receipt Date: 20111025
  Transmission Date: 20120928
  Serious: Yes (Other)
  Sender: FDA-Public Use
  Company Number: US-ASTRAZENECA-2011SE64390

PATIENT
  Sex: Male

DRUGS (1)
  1. SEROQUEL [Suspect]
     Indication: SLEEP DISORDER
     Dosage: 700 MG UP TO 2000 MG
     Route: 048

REACTIONS (4)
  - OVERDOSE [None]
  - PANCREATIC DISORDER [None]
  - OFF LABEL USE [None]
  - DIABETES MELLITUS [None]
